FAERS Safety Report 7590179-5 (Version None)
Quarter: 2011Q3

REPORT INFORMATION
  Report Type: 
  Country: None (occurrence: None)
  Receive Date: 20110705
  Receipt Date: 20110627
  Transmission Date: 20111222
  Serious: Yes (Other)
  Sender: FDA-Public Use
  Company Number: NL-JNJFOC-20101105546

PATIENT
  Sex: Male

DRUGS (1)
  1. STELARA [Suspect]
     Indication: PSORIASIS
     Route: 058

REACTIONS (6)
  - THERMAL BURN [None]
  - PYREXIA [None]
  - MALAISE [None]
  - DIARRHOEA [None]
  - PSORIASIS [None]
  - DRUG INEFFECTIVE [None]
